FAERS Safety Report 12286103 (Version 1)
Quarter: 2016Q2

REPORT INFORMATION
  Report Type: Spontaneous
  Country: GB (occurrence: GB)
  Receive Date: 20160420
  Receipt Date: 20160420
  Transmission Date: 20160815
  Serious: Yes (Other)
  Sender: FDA-Public Use
  Company Number: GB-TEVA-652102ACC

PATIENT
  Age: 61 Year
  Sex: Male
  Weight: 78 kg

DRUGS (8)
  1. RIFAXIMIN [Concomitant]
     Active Substance: RIFAXIMIN
     Dosage: 1000 MILLIGRAM DAILY;
  2. CIPROFLOXACIN. [Suspect]
     Active Substance: CIPROFLOXACIN
     Indication: HEPATIC ENCEPHALOPATHY
     Dosage: 1000 MILLIGRAM DAILY;
     Route: 048
     Dates: start: 20160302, end: 20160304
  3. FERUMOXSIDE [Concomitant]
     Dosage: 40 MILLIGRAM DAILY;
  4. HUMALOG [Concomitant]
     Active Substance: INSULIN LISPRO
     Dosage: SLIDING SCALE BEFORE MEALS.
  5. VITAMIN B COMPLEX [Concomitant]
     Active Substance: CYANOCOBALAMIN\DEXPANTHENOL\NIACINAMIDE\PYRIDOXINE HYDROCHLORIDE\RIBOFLAVIN 5^-PHOSPHATE SODIUM\THIAMINE HYDROCHLORIDE\VITAMIN B COMPLEX
  6. LACTULOSE. [Concomitant]
     Active Substance: LACTULOSE
     Dosage: 90 ML DAILY;
  7. THIAMIN [Concomitant]
     Active Substance: THIAMINE
  8. SPIRONOLACTONE. [Concomitant]
     Active Substance: SPIRONOLACTONE
     Dosage: 50 MILLIGRAM DAILY;

REACTIONS (3)
  - Tendon rupture [Not Recovered/Not Resolved]
  - Joint swelling [Not Recovered/Not Resolved]
  - Pain in extremity [Not Recovered/Not Resolved]

NARRATIVE: CASE EVENT DATE: 20160304
